FAERS Safety Report 11859513 (Version 3)
Quarter: 2016Q1

REPORT INFORMATION
  Report Type: Spontaneous
  Country: CA (occurrence: CA)
  Receive Date: 20151221
  Receipt Date: 20160323
  Transmission Date: 20160526
  Serious: Yes (Life-Threatening, Hospitalization)
  Sender: FDA-Public Use
  Company Number: CA-IGSA-GTI003760

PATIENT
  Age: 67 Year
  Sex: Male
  Weight: 73 kg

DRUGS (3)
  1. PLASBUMIN [Suspect]
     Active Substance: ALBUMIN (HUMAN)
     Indication: HYPOTENSION
     Route: 042
     Dates: start: 20151204, end: 20151204
  2. CEFAZOLIN [Concomitant]
     Active Substance: CEFAZOLIN
     Indication: PROPHYLAXIS
  3. CEPHALEXIN /00145501/ [Concomitant]
     Active Substance: CEPHALEXIN
     Route: 048
     Dates: start: 20151130

REACTIONS (5)
  - Anaphylactic shock [Recovered/Resolved with Sequelae]
  - Pyrexia [Unknown]
  - Malaise [Unknown]
  - Vomiting [Unknown]
  - Cardiac arrest [Recovered/Resolved with Sequelae]

NARRATIVE: CASE EVENT DATE: 20151204
